FAERS Safety Report 8208459-9 (Version None)
Quarter: 2012Q1

REPORT INFORMATION
  Report Type: 
  Country: None (occurrence: None)
  Receive Date: 20120314
  Receipt Date: 20120309
  Transmission Date: 20120608
  Serious: Yes (Other)
  Sender: FDA-Public Use
  Company Number: IT-PFIZER INC-2012064117

PATIENT
  Sex: Male

DRUGS (1)
  1. CYTARABINE [Suspect]
     Dosage: UNK

REACTIONS (2)
  - THROMBOCYTOPENIA [None]
  - RECTAL HAEMORRHAGE [None]
